FAERS Safety Report 23183563 (Version 1)
Quarter: 2023Q4

REPORT INFORMATION
  Report Type: Spontaneous
  Country: US (occurrence: US)
  Receive Date: 20231114
  Receipt Date: 20231114
  Transmission Date: 20240109
  Serious: No
  Sender: FDA-Public Use
  Company Number: US-PFIZER INC-202300355736

PATIENT
  Age: 29 Year
  Sex: Female

DRUGS (1)
  1. EUCRISA [Suspect]
     Active Substance: CRISABOROLE
     Indication: Dermatitis atopic
     Dosage: UNK UNK, 2X/DAY (AFTER COMPLETING 1-WEEK CLOBETASOL)

REACTIONS (1)
  - Condition aggravated [Unknown]
